FAERS Safety Report 14423436 (Version 1)
Quarter: 2018Q1

REPORT INFORMATION
  Report Type: Spontaneous
  Country: US (occurrence: US)
  Receive Date: 20180123
  Receipt Date: 20180123
  Transmission Date: 20180509
  Serious: No
  Sender: FDA-Public Use
  Company Number: US-TEVA-810169ACC

PATIENT
  Age: 74 Year
  Sex: Female

DRUGS (1)
  1. PERMETHRIN. [Suspect]
     Active Substance: PERMETHRIN

REACTIONS (3)
  - Malaise [Recovered/Resolved]
  - Burning sensation [Recovered/Resolved]
  - Insomnia [Recovered/Resolved]
